FAERS Safety Report 19962511 (Version 3)
Quarter: 2024Q2

REPORT INFORMATION
  Report Type: Report from Study
  Country: CA (occurrence: CA)
  Receive Date: 20211018
  Receipt Date: 20240516
  Transmission Date: 20240716
  Serious: Yes (Other)
  Sender: FDA-Public Use
  Company Number: CA-BIOGEN-2021BI01056188

PATIENT
  Sex: Male

DRUGS (1)
  1. SPINRAZA [Suspect]
     Active Substance: NUSINERSEN
     Indication: Spinal muscular atrophy
     Dosage: DAY 0, 14, 28,58 AND EVERY 4 MONTH THEREAFTER
     Route: 050
     Dates: start: 20200428

REACTIONS (1)
  - Spinal fusion surgery [Recovered/Resolved]
